FAERS Safety Report 15201559 (Version 2)
Quarter: 2018Q3

REPORT INFORMATION
  Report Type: Report from Study
  Country: US (occurrence: US)
  Receive Date: 20180726
  Receipt Date: 20180809
  Transmission Date: 20181010
  Serious: Yes (Hospitalization)
  Sender: FDA-Public Use
  Company Number: US-EISAI MEDICAL RESEARCH-EC-2018-042336

PATIENT
  Age: 77 Year
  Sex: Female
  Weight: 64.8 kg

DRUGS (14)
  1. NORTRIPTYLINE [Concomitant]
     Active Substance: NORTRIPTYLINE
  2. WARFARIN [Concomitant]
     Active Substance: WARFARIN
  3. LEVOTHYROXINE. [Concomitant]
     Active Substance: LEVOTHYROXINE
  4. SIMVASTIN [Concomitant]
     Active Substance: SIMVASTATIN
  5. LAMOTRIGINE. [Concomitant]
     Active Substance: LAMOTRIGINE
  6. METOPROLOL SUCCINATE. [Concomitant]
     Active Substance: METOPROLOL SUCCINATE
  7. BENZONATATE. [Concomitant]
     Active Substance: BENZONATATE
  8. EZETIMIBE. [Concomitant]
     Active Substance: EZETIMIBE
  9. LENVATINIB [Suspect]
     Active Substance: LENVATINIB
     Dosage: BLINDED DOSAGE
     Route: 048
     Dates: start: 20180717
  10. DIGOXIN. [Concomitant]
     Active Substance: DIGOXIN
  11. NORTRIPTYLINE [Concomitant]
     Active Substance: NORTRIPTYLINE
  12. LENVATINIB [Suspect]
     Active Substance: LENVATINIB
     Indication: THYROID CANCER
     Dosage: BLINDED DOSAGE
     Route: 048
     Dates: start: 20180626, end: 20180626
  13. LENVATINIB [Suspect]
     Active Substance: LENVATINIB
     Dosage: BLINDED DOSAGE
     Route: 048
     Dates: start: 20180628, end: 20180628
  14. FUROSEMIDE. [Concomitant]
     Active Substance: FUROSEMIDE

REACTIONS (2)
  - Subdural haematoma [Recovered/Resolved]
  - Hypoxia [Recovered/Resolved]

NARRATIVE: CASE EVENT DATE: 20180629
